FAERS Safety Report 9697299 (Version 2)
Quarter: 2014Q3

REPORT INFORMATION
  Report Type: Spontaneous
  Country: US (occurrence: US)
  Receive Date: 20131120
  Receipt Date: 20140923
  Transmission Date: 20150326
  Serious: Yes (Other)
  Sender: FDA-Public Use
  Company Number: US-TEVA-445256USA

PATIENT
  Age: 37 Year
  Sex: Female
  Weight: 58.57 kg

DRUGS (1)
  1. PARAGARD T380A [Suspect]
     Active Substance: COPPER
     Indication: CONTRACEPTION
     Route: 015
     Dates: start: 20130205, end: 20131028

REACTIONS (5)
  - Drug ineffective [Recovered/Resolved]
  - Menstruation delayed [Not Recovered/Not Resolved]
  - Pregnancy on contraceptive [Recovered/Resolved]
  - Exposure during pregnancy [Recovered/Resolved]
  - Live birth [Recovered/Resolved]

NARRATIVE: CASE EVENT DATE: 201310
